FAERS Safety Report 6602066-7 (Version None)
Quarter: 2010Q1

REPORT INFORMATION
  Report Type: 
  Country: None (occurrence: None)
  Receive Date: 20100225
  Receipt Date: 20100211
  Transmission Date: 20100710
  Serious: Yes (Hospitalization)
  Sender: FDA-Public Use
  Company Number: PHEH2009US17094

PATIENT
  Sex: Female
  Weight: 52.154 kg

DRUGS (4)
  1. EXJADE [Suspect]
     Dosage: 1500 MG, QD
     Route: 048
     Dates: start: 20090512, end: 20091103
  2. REVLIMID [Concomitant]
     Dosage: UNK
  3. LEVAQUIN [Concomitant]
  4. PRILOSEC [Concomitant]

REACTIONS (3)
  - ACUTE MYELOID LEUKAEMIA [None]
  - DIARRHOEA [None]
  - MALIGNANT TRANSFORMATION [None]
